FAERS Safety Report 7600016-8 (Version None)
Quarter: 2011Q2

REPORT INFORMATION
  Report Type: 
  Country: None (occurrence: None)
  Receive Date: 20110629
  Receipt Date: 20110613
  Transmission Date: 20111010
  Serious: Yes (Other)
  Sender: FDA-Public Use
  Company Number: 2011S1003805

PATIENT
  Age: 69 Year
  Sex: Female
  Weight: 66.2252 kg

DRUGS (6)
  1. PAROXETINE HCL [Concomitant]
  2. OMEPRAZOLE [Concomitant]
  3. TRAZODONE HCL [Concomitant]
  4. SODIUM PHOSPHATE MONOBASIC MONOHYDRATE AND NAPO4 DIBASIC ANHYDROUS [Suspect]
     Indication: COLONOSCOPY
     Dosage: PO
     Route: 048
  5. RELAFEN [Concomitant]
  6. AMLODIPINE [Concomitant]

REACTIONS (3)
  - NEPHROLITHIASIS [None]
  - TUBULOINTERSTITIAL NEPHRITIS [None]
  - ARTERIOSCLEROSIS [None]
